FAERS Safety Report 4389203-2 (Version None)
Quarter: 2004Q2

REPORT INFORMATION
  Report Type: 
  Country: None (occurrence: None)
  Receive Date: 20040630
  Receipt Date: 20040616
  Transmission Date: 20050107
  Serious: Yes (Hospitalization, Other)
  Sender: FDA-Public Use
  Company Number: 2004041161

PATIENT
  Age: 68 Year
  Sex: Male

DRUGS (13)
  1. AMLODIPINE [Suspect]
     Indication: ILL-DEFINED DISORDER
     Dosage: 5 MG (5 MG, 1 IN 1 D), ORAL
     Route: 048
     Dates: start: 20040401, end: 20040412
  2. BISOPROLOL FUMARATE [Suspect]
     Indication: ILL-DEFINED DISORDER
     Dosage: 5 MG (1 IN 1 D), ORAL
     Route: 048
     Dates: start: 20040401, end: 20040412
  3. RAMIPRIL [Suspect]
     Indication: ILL-DEFINED DISORDER
     Dosage: 1.25 MG (1 IN 1 D), ORAL
     Route: 048
     Dates: start: 20040401, end: 20040412
  4. OMEPRAZOLE [Concomitant]
  5. ALPRAZOLAM [Concomitant]
  6. ISOSORBIDE MONONITRATE [Concomitant]
  7. PRAVASTATIN SODIUM [Concomitant]
  8. ACEBUTOLOL HCL [Concomitant]
  9. AMIODARONE HCL [Concomitant]
  10. ACETYLSALICYLIC ACID SRT [Concomitant]
  11. PARACETAMOL (PARACETAMOL) [Concomitant]
  12. HYDROXYZINE HCL [Concomitant]
  13. ESOMEPRAZOLE (ESOMEPRAZOLE) [Concomitant]

REACTIONS (7)
  - CHOLESTASIS [None]
  - CORONARY REVASCULARISATION [None]
  - FLANK PAIN [None]
  - HEPATITIS [None]
  - HEPATITIS VIRAL [None]
  - LIVER DISORDER [None]
  - STAPHYLOCOCCAL INFECTION [None]
